FAERS Safety Report 5844557-2 (Version None)
Quarter: 2008Q3

REPORT INFORMATION
  Report Type: 
  Country: None (occurrence: None)
  Receive Date: 20080814
  Receipt Date: 20080813
  Transmission Date: 20090109
  Serious: Yes (Hospitalization)
  Sender: FDA-Public Use
  Company Number: PHHO2000DE09239

PATIENT
  Sex: Female
  Weight: 64 kg

DRUGS (1)
  1. EXELON [Suspect]
     Dosage: 0.5-6.0 MG, BID
     Route: 048
     Dates: start: 19991103

REACTIONS (5)
  - ATRIAL FIBRILLATION [None]
  - CONCOMITANT DISEASE PROGRESSION [None]
  - EXTRASYSTOLES [None]
  - PALPITATIONS [None]
  - TACHYCARDIA [None]
